FAERS Safety Report 16441259 (Version 8)
Quarter: 2020Q1

REPORT INFORMATION
  Report Type: Report from Study
  Country: US (occurrence: US)
  Receive Date: 20190617
  Receipt Date: 20200312
  Transmission Date: 20200409
  Serious: Yes (Hospitalization, Other)
  Sender: FDA-Public Use
  Company Number: US-MALLINCKRODT-T201902064

PATIENT
  Sex: Female
  Weight: 61 kg

DRUGS (21)
  1. PREDNISONE. [Suspect]
     Active Substance: PREDNISONE
     Indication: PNEUMONIA
     Dosage: 2 MILLIGRAM, UNK
     Route: 065
  2. PREDNISONE. [Suspect]
     Active Substance: PREDNISONE
     Dosage: 3 MILLIGRAM, UNK
     Route: 065
  3. PREDNISONE. [Suspect]
     Active Substance: PREDNISONE
     Dosage: 5 MILLIGRAM, QD
     Route: 065
  4. TYLENOL [Concomitant]
     Active Substance: ACETAMINOPHEN
     Indication: PRODUCT USED FOR UNKNOWN INDICATION
     Dosage: UNK
     Route: 065
  5. FOCALIN [Concomitant]
     Active Substance: DEXMETHYLPHENIDATE HYDROCHLORIDE
     Indication: ATTENTION DEFICIT/HYPERACTIVITY DISORDER
     Dosage: UNK
     Route: 065
  6. KLONOPIN [Concomitant]
     Active Substance: CLONAZEPAM
     Indication: PRODUCT USED FOR UNKNOWN INDICATION
     Dosage: UNK, TWICE DAILY
     Route: 065
  7. H.P. ACTHAR [Suspect]
     Active Substance: CORTICOTROPIN
     Indication: RHEUMATOID ARTHRITIS
     Dosage: UNK
     Route: 065
     Dates: start: 2017
  8. PLAVIX [Concomitant]
     Active Substance: CLOPIDOGREL BISULFATE
     Indication: ULCER HAEMORRHAGE
     Dosage: UNK
     Route: 065
  9. LYRICA [Concomitant]
     Active Substance: PREGABALIN
     Indication: PRODUCT USED FOR UNKNOWN INDICATION
     Dosage: UNK
     Route: 065
  10. H.P. ACTHAR [Suspect]
     Active Substance: CORTICOTROPIN
     Dosage: 80 UNITS / 1 ML, 2 TIMES PER WEEK, TUES/FRI
     Route: 058
     Dates: start: 2019
  11. PLAVIX [Concomitant]
     Active Substance: CLOPIDOGREL BISULFATE
     Indication: RETINAL ARTERY OCCLUSION
  12. HUMIRA [Concomitant]
     Active Substance: ADALIMUMAB
     Indication: RHEUMATOID ARTHRITIS
     Dosage: UNK
     Route: 065
  13. H.P. ACTHAR [Suspect]
     Active Substance: CORTICOTROPIN
     Dosage: 80 UNITS/1 ML, 2 TIMES PER WEEK, FOR 12 WEEKS
     Route: 065
     Dates: start: 201804, end: 201812
  14. H.P. ACTHAR [Suspect]
     Active Substance: CORTICOTROPIN
     Dosage: 80 UNITS / 1 ML, 2 TIMES PER WEEK (TUES/FRI)
     Route: 058
     Dates: start: 20190521, end: 2019
  15. PREDNISONE. [Suspect]
     Active Substance: PREDNISONE
     Indication: ADRENAL INSUFFICIENCY
     Dosage: 50 MILLIGRAM, UNK
     Route: 065
  16. LEVOTHYROXINE. [Concomitant]
     Active Substance: LEVOTHYROXINE
     Indication: THYROID DISORDER
     Dosage: UNK
     Route: 065
  17. PROZAC [Concomitant]
     Active Substance: FLUOXETINE HYDROCHLORIDE
     Indication: PRODUCT USED FOR UNKNOWN INDICATION
     Dosage: UNK
     Route: 065
  18. H.P. ACTHAR [Suspect]
     Active Substance: CORTICOTROPIN
     Dosage: 80 UNITS/1 ML, 2 TIMES PER WEEK, (TUESDAY/FRIDAY)
     Route: 058
     Dates: start: 2019
  19. PREDNISONE. [Suspect]
     Active Substance: PREDNISONE
     Dosage: 5 MILLIGRAM, UNK
  20. EXCEDRIN [Concomitant]
     Active Substance: ACETAMINOPHEN\ASPIRIN\CAFFEINE
     Indication: HEADACHE
  21. ORENCIA [Concomitant]
     Active Substance: ABATACEPT
     Indication: RHEUMATOID ARTHRITIS
     Dosage: UNK
     Route: 065

REACTIONS (44)
  - Coma [Recovered/Resolved]
  - Hallucination [Recovering/Resolving]
  - Immunosuppression [Unknown]
  - Hand fracture [Unknown]
  - Limb operation [Unknown]
  - Visual acuity reduced [Not Recovered/Not Resolved]
  - Cough [Not Recovered/Not Resolved]
  - Weight decreased [Unknown]
  - Influenza [Unknown]
  - Skin neoplasm excision [Unknown]
  - Blood iron decreased [Unknown]
  - Asthenia [Unknown]
  - Herpes zoster [Recovering/Resolving]
  - Encephalitis [Recovering/Resolving]
  - Skin cancer [Not Recovered/Not Resolved]
  - Sepsis [Unknown]
  - Contusion [Unknown]
  - Fatigue [Recovering/Resolving]
  - Pneumonia [Recovering/Resolving]
  - Weight increased [Recovering/Resolving]
  - Dysarthria [Unknown]
  - Balance disorder [Unknown]
  - Haemoglobin decreased [Unknown]
  - Arthralgia [Recovered/Resolved]
  - Gait disturbance [Unknown]
  - Cerebrovascular accident [Unknown]
  - Meningitis viral [Recovering/Resolving]
  - Loss of consciousness [Recovering/Resolving]
  - Urinary tract infection [Recovering/Resolving]
  - Malaise [Unknown]
  - Skin disorder [Unknown]
  - Hypotension [Recovered/Resolved]
  - Cushingoid [Unknown]
  - Pneumonia staphylococcal [Recovering/Resolving]
  - Hand deformity [Unknown]
  - Bone pain [Unknown]
  - Gastric ulcer [Not Recovered/Not Resolved]
  - Treatment noncompliance [Recovering/Resolving]
  - Adrenal insufficiency [Unknown]
  - Renal failure [Unknown]
  - Fall [Unknown]
  - Back pain [Unknown]
  - Procedural pain [Unknown]
  - Withdrawal syndrome [Unknown]

NARRATIVE: CASE EVENT DATE: 2019
